FAERS Safety Report 5596767-X (Version None)
Quarter: 2008Q1

REPORT INFORMATION
  Report Type: 
  Country: None (occurrence: None)
  Receive Date: 20080118
  Receipt Date: 20080109
  Transmission Date: 20080703
  Serious: Yes (Death)
  Sender: FDA-Public Use
  Company Number: US-PFIZER INC-2008003060

PATIENT
  Age: 47 Year
  Sex: Male

DRUGS (6)
  1. ATORVASTATIN [Suspect]
  2. DILTIAZEM HCL [Suspect]
  3. CARDIAC GLYCOSIDES [Suspect]
  4. WARFARIN SODIUM [Suspect]
  5. HYDROCHLOROTHIAZIDE [Suspect]
  6. ACE INHIBITOR NOS [Suspect]

REACTIONS (1)
  - COMPLETED SUICIDE [None]
